FAERS Safety Report 11052065 (Version 6)
Quarter: 2015Q3

REPORT INFORMATION
  Report Type: Report from Study
  Country: DE (occurrence: DE)
  Receive Date: 20150421
  Receipt Date: 20150717
  Transmission Date: 20151125
  Serious: Yes (Hospitalization)
  Sender: FDA-Public Use
  Company Number: DE-BAYER-2015-017610

PATIENT
  Age: 72 Year
  Sex: Male
  Weight: 62 kg

DRUGS (15)
  1. TAMSULOSIN [Concomitant]
     Active Substance: TAMSULOSIN
     Dosage: 0.4 MG, DAILY
     Dates: start: 20150206
  2. STIVARGA [Suspect]
     Active Substance: REGORAFENIB
     Indication: COLORECTAL CANCER METASTATIC
     Dosage: 40 MG, TID, 120MG 3X40MG
     Route: 048
     Dates: start: 20150320, end: 20150410
  3. STIVARGA [Suspect]
     Active Substance: REGORAFENIB
     Indication: COLORECTAL CANCER METASTATIC
     Dosage: 80 MG, QD
     Route: 048
     Dates: start: 20150415, end: 20150517
  4. KALINOR [Concomitant]
     Active Substance: POTASSIUM CITRATE
     Dosage: 1, DAILY
     Dates: start: 20150515
  5. STIVARGA [Suspect]
     Active Substance: REGORAFENIB
     Indication: COLORECTAL CANCER METASTATIC
     Dosage: 160 MG, QD, USUALLY IN THE EVENING
     Route: 048
     Dates: start: 20141213, end: 20150212
  6. RAMIPRIL. [Concomitant]
     Active Substance: RAMIPRIL
     Dosage: 5 MG, DAILY
     Dates: start: 2010
  7. AMLODIPIN [Concomitant]
     Active Substance: AMLODIPINE BESYLATE
     Dosage: 5 MG, QD
     Dates: start: 20150515
  8. ASPIRIN. [Concomitant]
     Active Substance: ASPIRIN
     Dosage: 100 MG, DAILY
     Dates: start: 2010
  9. CIPROFLOXACIN. [Concomitant]
     Active Substance: CIPROFLOXACIN
     Dosage: DAILY DOSE 500 MG
     Dates: start: 201502, end: 20150206
  10. SALOFALK [AMINOSALICYLIC ACID] [Concomitant]
     Dosage: DAILY DOSE 1000 MG
     Dates: start: 20150411
  11. VIGANTOLETTEN [Concomitant]
     Active Substance: CHOLECALCIFEROL
     Indication: VITAMIN SUPPLEMENTATION
     Dosage: DAILY DOSE 1000 IU
     Dates: start: 20150415
  12. LAXOFALK [Concomitant]
     Dosage: 10 MG, QD
     Dates: start: 20150515
  13. BEPANTHEN [DEXPANTHENOL] [Concomitant]
     Indication: DRUG TOXICITY PROPHYLAXIS
     Dosage: UNK
     Dates: start: 20141213
  14. CIPROBAY [Concomitant]
     Active Substance: CIPROFLOXACIN
     Dosage: DAILY DOSE 500 MG
     Dates: start: 20150411, end: 20150415
  15. METOPROLOL [Concomitant]
     Active Substance: METOPROLOL
     Dosage: 47.5 MG, QD
     Dates: start: 20150515

REACTIONS (5)
  - Dehydration [Recovered/Resolved]
  - Dehydration [Recovered/Resolved]
  - Acute kidney injury [Recovered/Resolved]
  - Arterial occlusive disease [Recovered/Resolved]
  - Acute kidney injury [Recovered/Resolved]

NARRATIVE: CASE EVENT DATE: 20150109
